FAERS Safety Report 7484196-3 (Version None)
Quarter: 2011Q2

REPORT INFORMATION
  Report Type: 
  Country: None (occurrence: None)
  Receive Date: 20110513
  Receipt Date: 20110513
  Transmission Date: 20111010
  Serious: Yes (Hospitalization)
  Sender: FDA-Public Use
  Company Number: None

PATIENT
  Age: 53 Year
  Sex: Female
  Weight: 78.4723 kg

DRUGS (3)
  1. LANSOPRAZOLE [Suspect]
     Indication: BARRETT'S OESOPHAGUS
     Dosage: 30MG 2X DAILY PO
     Route: 048
  2. LANSOPRAZOLE [Suspect]
     Indication: GASTRITIS
     Dosage: 30MG 2X DAILY PO
     Route: 048
  3. LANSOPRAZOLE [Suspect]
     Indication: ULCER
     Dosage: 30MG 2X DAILY PO
     Route: 048

REACTIONS (7)
  - TRANSPLANT [None]
  - BARRETT'S OESOPHAGUS [None]
  - SYNCOPE [None]
  - FOOT FRACTURE [None]
  - FRACTURE NONUNION [None]
  - HUMERUS FRACTURE [None]
  - TINNITUS [None]
